FAERS Safety Report 4445493-9 (Version None)
Quarter: 2004Q3

REPORT INFORMATION
  Report Type: 
  Country: None (occurrence: None)
  Receive Date: 20040810
  Receipt Date: 20040615
  Transmission Date: 20050211
  Serious: Yes (Other)
  Sender: FDA-Public Use
  Company Number: SUS1-2004-00364

PATIENT
  Age: 16 Year
  Sex: Male

DRUGS (2)
  1. ADDERALL XR (DEXTROAMPHETAMINE SULFATE, DEXTROAMPHETAMINE SACCHARATE, [Suspect]
     Dosage: INCREASED TO 40MG IN A.M.,
     Dates: start: 20030801
  2. ADDERALL (AMPHETAMINE ASPARTATE, AMPHETAMINE SULFATE, DEXTROAMPHETAMIN [Suspect]
     Dosage: 10 MG, 1X/DAY:QD

REACTIONS (1)
  - PSYCHOTIC DISORDER [None]
